FAERS Safety Report 5292712-5 (Version None)
Quarter: 2007Q2

REPORT INFORMATION
  Report Type: 
  Country: None (occurrence: None)
  Receive Date: 20070404
  Receipt Date: 20070322
  Transmission Date: 20071010
  Serious: No
  Sender: FDA-Public Use
  Company Number: 2007-153638-NL

PATIENT
  Sex: Female

DRUGS (1)
  1. NUVARING [Suspect]
     Dosage: NI VAGINAL
     Route: 067
     Dates: start: 20060901, end: 20061101

REACTIONS (3)
  - HYPERSENSITIVITY [None]
  - PAIN [None]
  - VAGINAL DISCHARGE [None]
